FAERS Safety Report 8588114 (Version 2)
Quarter: 2014Q1

REPORT INFORMATION
  Report Type: Spontaneous
  Country: US (occurrence: US)
  Receive Date: 20120531
  Receipt Date: 20140121
  Transmission Date: 20141002
  Serious: Yes (Other)
  Sender: FDA-Public Use
  Company Number: US-BAYER-2012-052533

PATIENT
  Age: 48 Year
  Sex: Female

DRUGS (8)
  1. YAZ [Suspect]
     Dosage: UNK
     Dates: start: 20080303, end: 20101019
  2. YAZ [Suspect]
     Dosage: UNK
     Dates: start: 20110310, end: 20110910
  3. GIANVI [Suspect]
     Dosage: UNK
     Dates: start: 20101019, end: 20110310
  4. PRILOSEC [Concomitant]
     Dosage: UNK UNK, BID
  5. PERCOCET [Concomitant]
     Dosage: UNK UNK, PRN
  6. PHENERGAN [Concomitant]
     Dosage: UNK UNK, PRN
  7. OXYCODONE/APAP [Concomitant]
  8. PHENADOZ [Concomitant]
     Dosage: 25 MG, UNK

REACTIONS (7)
  - Cholecystectomy [None]
  - Cholecystitis chronic [None]
  - Injury [None]
  - Emotional distress [None]
  - Depression [None]
  - Fear of death [None]
  - Nervousness [None]
